FAERS Safety Report 23647345 (Version 2)
Quarter: 2024Q2

REPORT INFORMATION
  Report Type: Spontaneous
  Country: JP (occurrence: JP)
  Receive Date: 20240319
  Receipt Date: 20240408
  Transmission Date: 20240716
  Serious: Yes (Hospitalization, Other)
  Sender: FDA-Public Use
  Company Number: JP-CLGN-JP-CLI-2024-009674

PATIENT
  Age: 73 Year
  Sex: Male

DRUGS (1)
  1. HYDROXYUREA [Suspect]
     Active Substance: HYDROXYUREA
     Indication: Polycythaemia vera
     Route: 048
     Dates: end: 20240308

REACTIONS (1)
  - Spinal cord injury [Unknown]

NARRATIVE: CASE EVENT DATE: 20240308
